FAERS Safety Report 18978643 (Version 2)
Quarter: 2022Q3

REPORT INFORMATION
  Report Type: Spontaneous
  Country: US (occurrence: US)
  Receive Date: 20210308
  Receipt Date: 20220911
  Transmission Date: 20221027
  Serious: No
  Sender: FDA-Public Use
  Company Number: US-SA-SAC20210304000638

PATIENT
  Sex: Female
  Weight: 64 kg

DRUGS (13)
  1. CEREZYME [Suspect]
     Active Substance: IMIGLUCERASE
     Indication: Lipidosis
     Dosage: 4800 IU, QOW
     Route: 065
     Dates: start: 20100217
  2. CEREZYME [Suspect]
     Active Substance: IMIGLUCERASE
     Indication: Gaucher^s disease
  3. PREDNISONE ACETATE [Concomitant]
     Active Substance: PREDNISONE ACETATE
  4. DIPHENHYDRAMINE [Concomitant]
     Active Substance: DIPHENHYDRAMINE
  5. FAMOTIDINE [Concomitant]
     Active Substance: FAMOTIDINE
  6. METHYLPREDNISOLONE [Concomitant]
     Active Substance: METHYLPREDNISOLONE
  7. SODIUM CHLORIDE [Concomitant]
     Active Substance: SODIUM CHLORIDE
  8. STERILE WATER [Concomitant]
     Active Substance: WATER
  9. EPINEPHRINE [Concomitant]
     Active Substance: EPINEPHRINE
  10. LIDOCAINE [Concomitant]
     Active Substance: LIDOCAINE
  11. AMITRIPTYLINE HYDROCHLORIDE [Concomitant]
     Active Substance: AMITRIPTYLINE HYDROCHLORIDE
  12. VENLAFAXINE [Concomitant]
     Active Substance: VENLAFAXINE HYDROCHLORIDE
  13. ADVIL [Concomitant]
     Active Substance: IBUPROFEN

REACTIONS (1)
  - COVID-19 [Unknown]
